FAERS Safety Report 12330364 (Version 3)
Quarter: 2016Q2

REPORT INFORMATION
  Report Type: Report from Study
  Country: US (occurrence: US)
  Receive Date: 20160504
  Receipt Date: 20160529
  Transmission Date: 20160815
  Serious: No
  Sender: FDA-Public Use
  Company Number: US-AMGEN-USASL2016054553

PATIENT
  Age: 64 Year
  Sex: Female

DRUGS (1)
  1. ENBREL [Suspect]
     Active Substance: ETANERCEPT
     Indication: RHEUMATOID ARTHRITIS
     Dosage: UNK UNK, WEEKLY
     Route: 065
     Dates: start: 20160311

REACTIONS (12)
  - Injection site pain [Unknown]
  - Injection site pruritus [Unknown]
  - Injection site reaction [Unknown]
  - Myalgia [Unknown]
  - Musculoskeletal stiffness [Unknown]
  - Injection site erythema [Unknown]
  - Nasopharyngitis [Unknown]
  - Injection site swelling [Unknown]
  - Influenza [Unknown]
  - Injection site discolouration [Unknown]
  - Injection site warmth [Unknown]
  - Inappropriate schedule of drug administration [Unknown]

NARRATIVE: CASE EVENT DATE: 2016
